FAERS Safety Report 11130611 (Version 1)
Quarter: 2015Q2

REPORT INFORMATION
  Report Type: Spontaneous
  Country: US (occurrence: None)
  Receive Date: 20150521
  Receipt Date: 20150521
  Transmission Date: 20150821
  Serious: Yes (Life-Threatening, Hospitalization, Disabling, Other)
  Sender: FDA-Public Use
  Company Number: None

PATIENT
  Age: 48 Year
  Sex: Female

DRUGS (8)
  1. SIMVASTATIN 25MG [Suspect]
     Active Substance: SIMVASTATIN
     Indication: DRUG DISPENSING ERROR
     Route: 048
  2. CALCIUM [Concomitant]
     Active Substance: CALCIUM
  3. OXYCODONE [Concomitant]
     Active Substance: OXYCODONE
  4. AMLODIPINE 2.5 MG [Suspect]
     Active Substance: AMLODIPINE BESYLATE
     Indication: DRUG DISPENSING ERROR
     Route: 048
  5. MULTI VITAMINS [Concomitant]
  6. ATENOLOL. [Concomitant]
     Active Substance: ATENOLOL
  7. PACEMAKER [Concomitant]
  8. CYMBALTA [Concomitant]
     Active Substance: DULOXETINE HYDROCHLORIDE

REACTIONS (7)
  - Drug dispensing error [None]
  - Memory impairment [None]
  - Loss of consciousness [None]
  - Cardiac disorder [None]
  - Wrong drug administered [None]
  - Asthenia [None]
  - Fatigue [None]
